FAERS Safety Report 20518915 (Version 2)
Quarter: 2022Q2

REPORT INFORMATION
  Report Type: Spontaneous
  Country: RO (occurrence: RO)
  Receive Date: 20220225
  Receipt Date: 20220412
  Transmission Date: 20220721
  Serious: Yes (Other)
  Sender: FDA-Public Use
  Company Number: RO-TAKEDA-2021TUS070201

PATIENT
  Age: 9 Month
  Sex: Male

DRUGS (6)
  1. HUMAN IMMUNOGLOBULIN G [Suspect]
     Active Substance: HUMAN IMMUNOGLOBULIN G
     Indication: Kawasaki^s disease
     Dosage: 2 GRAM PER KILOGRAM, SINGLE
     Route: 042
  2. HUMAN IMMUNOGLOBULIN G [Suspect]
     Active Substance: HUMAN IMMUNOGLOBULIN G
     Indication: COVID-19
     Dosage: 400 MILLIGRAM/KILOGRAM
     Route: 042
  3. ASPIRIN [Suspect]
     Active Substance: ASPIRIN
     Indication: Kawasaki^s disease
     Dosage: 4 MILLIGRAM/KILOGRAM
     Route: 065
  4. METHYLPREDNISOLONE [Concomitant]
     Active Substance: METHYLPREDNISOLONE
     Route: 065
  5. ENOXAPARIN [Concomitant]
     Active Substance: ENOXAPARIN
     Route: 065
  6. MEDROL [Concomitant]
     Active Substance: METHYLPREDNISOLONE
     Dosage: 2 MILLIGRAM/KILOGRAM
     Route: 065

REACTIONS (3)
  - Drug ineffective [Unknown]
  - Therapy non-responder [Unknown]
  - Off label use [Unknown]
